FAERS Safety Report 15202215 (Version 1)
Quarter: 2018Q3

REPORT INFORMATION
  Report Type: Spontaneous
  Country: US (occurrence: US)
  Receive Date: 20180627
  Receipt Date: 20180627
  Transmission Date: 20181010
  Serious: Yes (Hospitalization, Disabling)
  Sender: FDA-Public Use
  Company Number: None

PATIENT
  Age: 54 Year
  Sex: Female
  Weight: 83.7 kg

DRUGS (14)
  1. BUSPIRION [Concomitant]
  2. BIOTIN [Concomitant]
     Active Substance: BIOTIN
  3. LEVAQUIN [Suspect]
     Active Substance: LEVOFLOXACIN
     Indication: PNEUMONIA
     Dosage: ?          QUANTITY:30 TABLET(S);?
     Route: 048
     Dates: start: 20180420, end: 20180425
  4. LATUDA [Concomitant]
     Active Substance: LURASIDONE HYDROCHLORIDE
  5. DEPAKOTE [Concomitant]
     Active Substance: DIVALPROEX SODIUM
  6. BUPROPION. [Concomitant]
     Active Substance: BUPROPION
  7. GABAPENTIN. [Concomitant]
     Active Substance: GABAPENTIN
  8. KERITAN [Concomitant]
  9. ZAMBIAN [Concomitant]
  10. VITAMIN D3 [Concomitant]
     Active Substance: CHOLECALCIFEROL
  11. TRAZODONE [Concomitant]
     Active Substance: TRAZODONE HYDROCHLORIDE
  12. MULTIVITAMIN [Concomitant]
     Active Substance: VITAMINS
  13. CARTIA XT [Concomitant]
     Active Substance: DILTIAZEM HYDROCHLORIDE
  14. VITAMIN B COMPLEX [Concomitant]
     Active Substance: CYANOCOBALAMIN\DEXPANTHENOL\NIACINAMIDE\PYRIDOXINE HYDROCHLORIDE\RIBOFLAVIN 5^-PHOSPHATE SODIUM\THIAMINE HYDROCHLORIDE\VITAMIN B COMPLEX

REACTIONS (9)
  - Chest pain [None]
  - Asthenia [None]
  - Tendon pain [None]
  - Dyspnoea [None]
  - Neuropathy peripheral [None]
  - Atrial fibrillation [None]
  - Gait disturbance [None]
  - Heart rate increased [None]
  - Pain in extremity [None]

NARRATIVE: CASE EVENT DATE: 20180423
